FAERS Safety Report 7756943-4 (Version None)
Quarter: 2011Q3

REPORT INFORMATION
  Report Type: 
  Country: None (occurrence: None)
  Receive Date: 20110916
  Receipt Date: 20110913
  Transmission Date: 20111222
  Serious: Yes (Hospitalization)
  Sender: FDA-Public Use
  Company Number: AU-GLAXOSMITHKLINE-B0747778A

PATIENT
  Sex: Female

DRUGS (1)
  1. FLOLAN [Suspect]
     Indication: PRODUCT USED FOR UNKNOWN INDICATION
     Route: 065

REACTIONS (7)
  - CHEST PAIN [None]
  - VISION BLURRED [None]
  - PALLOR [None]
  - PARAESTHESIA [None]
  - VOMITING [None]
  - FEELING HOT [None]
  - PERIPHERAL COLDNESS [None]
